FAERS Safety Report 17342096 (Version 1)
Quarter: 2020Q1

REPORT INFORMATION
  Report Type: Spontaneous
  Country: US (occurrence: US)
  Receive Date: 20200129
  Receipt Date: 20200129
  Transmission Date: 20200409
  Serious: No
  Sender: FDA-Public Use
  Company Number: US-ASTRAZENECA-2020SE10926

PATIENT
  Age: 180 Day
  Sex: Female

DRUGS (2)
  1. SYNAGIS [Suspect]
     Active Substance: PALIVIZUMAB
     Indication: RESPIRATORY SYNCYTIAL VIRUS TEST
     Route: 030
     Dates: start: 20190911
  2. SYNAGIS [Suspect]
     Active Substance: PALIVIZUMAB
     Indication: INFLUENZA
     Route: 030
     Dates: start: 20190911

REACTIONS (2)
  - Gastrooesophageal reflux disease [Unknown]
  - Feeding disorder [Unknown]

NARRATIVE: CASE EVENT DATE: 20200105
